FAERS Safety Report 10067686 (Version 3)
Quarter: 2014Q3

REPORT INFORMATION
  Report Type: Spontaneous
  Country: US (occurrence: US)
  Receive Date: 20140409
  Receipt Date: 20140704
  Transmission Date: 20150326
  Serious: Yes (Death, Hospitalization)
  Sender: FDA-Public Use
  Company Number: US-SA-2014SA044248

PATIENT
  Age: 66 Year
  Sex: Male
  Weight: 90.71 kg

DRUGS (16)
  1. IOPIDINE [Concomitant]
     Active Substance: APRACLONIDINE HYDROCHLORIDE
  2. CENTRUM [Concomitant]
     Active Substance: VITAMINS
  3. PREDNISONE. [Concomitant]
     Active Substance: PREDNISONE
  4. DIFLUCAN [Concomitant]
     Active Substance: FLUCONAZOLE
  5. PROGRAF [Concomitant]
     Active Substance: TACROLIMUS\TACROLIMUS ANHYDROUS
  6. CEREZYME [Suspect]
     Active Substance: IMIGLUCERASE
     Indication: GAUCHER^S DISEASE
     Dosage: DOSE : 5200 UNITS DOSE:57.3 UNIT(S)/KILOGRAM BODYWEIGHT
     Route: 042
     Dates: start: 20091223, end: 201405
  7. METHAZOLAMIDE. [Concomitant]
     Active Substance: METHAZOLAMIDE
  8. LIPITOR [Concomitant]
     Active Substance: ATORVASTATIN CALCIUM
  9. ENALAPRIL [Concomitant]
     Active Substance: ENALAPRIL
  10. ACTONEL [Concomitant]
     Active Substance: RISEDRONATE SODIUM
  11. TIMOLOL [Concomitant]
     Active Substance: TIMOLOL
  12. MAGNESIUM [Concomitant]
     Active Substance: MAGNESIUM
  13. TORSEMIDE. [Concomitant]
     Active Substance: TORSEMIDE
  14. BACTRIM [Concomitant]
     Active Substance: SULFAMETHOXAZOLE\TRIMETHOPRIM
  15. TRICOR [Concomitant]
     Active Substance: FENOFIBRATE
  16. CALCIUM [Concomitant]
     Active Substance: CALCIUM

REACTIONS (2)
  - Hospitalisation [Not Recovered/Not Resolved]
  - Death [Fatal]

NARRATIVE: CASE EVENT DATE: 2014
